FAERS Safety Report 19400882 (Version 1)
Quarter: 2021Q2

REPORT INFORMATION
  Report Type: Spontaneous
  Country: CA (occurrence: CA)
  Receive Date: 20210611
  Receipt Date: 20210611
  Transmission Date: 20210717
  Serious: Yes (Hospitalization)
  Sender: FDA-Public Use
  Company Number: CA-JNJFOC-20210620590

PATIENT
  Sex: Female

DRUGS (18)
  1. BISOPROLOL [Concomitant]
     Active Substance: BISOPROLOL
  2. VITAMIN D [VITAMIN D NOS] [Concomitant]
     Active Substance: VITAMIN D NOS
  3. ZOPICLONE [Concomitant]
     Active Substance: ZOPICLONE
  4. XARELTO [Suspect]
     Active Substance: RIVAROXABAN
     Indication: ATRIAL FIBRILLATION
     Route: 048
  5. ATORVASTATIN [Concomitant]
     Active Substance: ATORVASTATIN
  6. CALCIUM CARBONATE. [Concomitant]
     Active Substance: CALCIUM CARBONATE
  7. DICLOFENAC [Concomitant]
     Active Substance: DICLOFENAC
  8. AMLODIPINE [Concomitant]
     Active Substance: AMLODIPINE BESYLATE
  9. ESCITALOPRAM [Concomitant]
     Active Substance: ESCITALOPRAM OXALATE
  10. FUROSEMIDE. [Concomitant]
     Active Substance: FUROSEMIDE
  11. SENNA [Concomitant]
     Active Substance: SENNA LEAF\SENNOSIDES\SENNOSIDES A AND B
  12. XARELTO [Suspect]
     Active Substance: RIVAROXABAN
     Indication: CEREBROVASCULAR ACCIDENT PROPHYLAXIS
     Dosage: 15.0 MG, QD
     Route: 048
  13. DIGOXIN. [Concomitant]
     Active Substance: DIGOXIN
  14. IRBESARTAN. [Concomitant]
     Active Substance: IRBESARTAN
  15. TRAMACET [PARACETAMOL;TRAMADOL HYDROCHLORIDE] [Concomitant]
     Active Substance: ACETAMINOPHEN\TRAMADOL
  16. PANTOPRAZOLE [Concomitant]
     Active Substance: PANTOPRAZOLE
  17. ACETAMINOPHEN. [Concomitant]
     Active Substance: ACETAMINOPHEN
  18. FERROUS GLUCONATE [Concomitant]
     Active Substance: FERROUS GLUCONATE

REACTIONS (6)
  - Anaemia [Unknown]
  - Gastrointestinal haemorrhage [Unknown]
  - Pallor [Unknown]
  - Pneumonia aspiration [Unknown]
  - Malaise [Unknown]
  - Melaena [Unknown]
